FAERS Safety Report 4739128-5 (Version None)
Quarter: 2005Q3

REPORT INFORMATION
  Report Type: 
  Country: None (occurrence: None)
  Receive Date: 20050810
  Receipt Date: 20050420
  Transmission Date: 20060218
  Serious: No
  Sender: FDA-Public Use
  Company Number: US-GLAXOSMITHKLINE-A0555054A

PATIENT
  Age: 29 Year
  Sex: Female

DRUGS (1)
  1. PAXIL CR [Suspect]
     Route: 048
     Dates: start: 20030101, end: 20050101

REACTIONS (4)
  - DIARRHOEA [None]
  - DIZZINESS [None]
  - DRUG WITHDRAWAL SYNDROME [None]
  - SOMNOLENCE [None]
